FAERS Safety Report 14579619 (Version 1)
Quarter: 2018Q1

REPORT INFORMATION
  Report Type: Spontaneous
  Country: US (occurrence: US)
  Receive Date: 20180227
  Receipt Date: 20180227
  Transmission Date: 20180509
  Serious: No
  Sender: FDA-Public Use
  Company Number: US-009507513-1801USA013812

PATIENT
  Sex: Female

DRUGS (2)
  1. FOLLISTIM AQ [Suspect]
     Active Substance: FOLLITROPIN
     Indication: INFERTILITY FEMALE
     Dosage: 75-450UNITS DAILY
     Route: 058
     Dates: start: 20171103
  2. PROGESTERONE. [Suspect]
     Active Substance: PROGESTERONE
     Route: 048

REACTIONS (1)
  - Maternal exposure during pregnancy [Unknown]
